FAERS Safety Report 6486673-0 (Version None)
Quarter: 2009Q4

REPORT INFORMATION
  Report Type: 
  Country: None (occurrence: None)
  Receive Date: 20091210
  Receipt Date: 20091127
  Transmission Date: 20100525
  Serious: Yes (Hospitalization)
  Sender: FDA-Public Use
  Company Number: KP-MEDIMMUNE-MEDI-0009783

PATIENT
  Age: 3 Month

DRUGS (1)
  1. SYNAGIS [Suspect]
     Dates: start: 20091001, end: 20091101

REACTIONS (2)
  - BRONCHITIS [None]
  - RESPIRATORY SYNCYTIAL VIRUS INFECTION [None]
